FAERS Safety Report 25503765 (Version 1)
Quarter: 2025Q2

REPORT INFORMATION
  Report Type: Spontaneous
  Country: US (occurrence: None)
  Receive Date: 20250630
  Receipt Date: 20250630
  Transmission Date: 20250716
  Serious: Yes (unspecified)
  Sender: FDA-CTU
  Company Number: None

PATIENT
  Age: 70 Year
  Sex: Female
  Weight: 68.1 kg

DRUGS (1)
  1. GAMMAGARD LIQUID [Suspect]
     Active Substance: HUMAN IMMUNOGLOBULIN G
     Indication: Immunodeficiency common variable
     Route: 042

REACTIONS (7)
  - Infusion related reaction [None]
  - Pruritus [None]
  - Rash [None]
  - Rash [None]
  - Rash [None]
  - Lip swelling [None]
  - Hypoaesthesia oral [None]

NARRATIVE: CASE EVENT DATE: 20250627
